FAERS Safety Report 11521649 (Version 1)
Quarter: 2015Q3

REPORT INFORMATION
  Report Type: Spontaneous
  Country: US (occurrence: US)
  Receive Date: 20150918
  Receipt Date: 20150918
  Transmission Date: 20151125
  Serious: Yes (Other)
  Sender: FDA-Public Use
  Company Number: US-ROCHE-672146

PATIENT
  Age: 53 Year
  Sex: Male
  Weight: 54.4 kg

DRUGS (8)
  1. ZOLPIDEM [Concomitant]
     Active Substance: ZOLPIDEM\ZOLPIDEM TARTRATE
     Route: 065
  2. RIBASPHERE RIBAPAK [Suspect]
     Active Substance: RIBAVIRIN
     Indication: HEPATITIS C
     Dosage: DIVIDED DOSES;  OTHER INDICATION: SEPTAL FIBROSIS GRADE 3, STAGE 4
     Route: 048
     Dates: start: 20091116, end: 20100115
  3. PEGASYS [Suspect]
     Active Substance: PEGINTERFERON ALFA-2A
     Indication: HEPATITIS C
     Dosage: FORM: PFS, OTHER INDICATION: SEPTAL FIBROSIS GRADE 3, STAGE 4
     Route: 058
     Dates: start: 20091116, end: 20091207
  4. CITALOPRAM [Concomitant]
     Active Substance: CITALOPRAM HYDROBROMIDE
     Dosage: DOSE WAS INCREASED TO 40 MG DAILY
     Route: 065
  5. PEGASYS [Suspect]
     Active Substance: PEGINTERFERON ALFA-2A
     Dosage: PATIENT IN WEEK 35
     Route: 058
  6. RIBASPHERE RIBAPAK [Suspect]
     Active Substance: RIBAVIRIN
     Route: 048
  7. RIBASPHERE RIBAPAK [Suspect]
     Active Substance: RIBAVIRIN
     Dosage: TAKEN IN MORNING; PATIENT IN WEEK 35
     Route: 048
  8. COPEGUS [Suspect]
     Active Substance: RIBAVIRIN
     Indication: HEPATITIS C
     Dosage: TAKEN IN EVENING;  OTHER INDICATION: SEPTAL FIBROSIS GRADE 3, STAGE 4; PATIENT IN WEEK 35
     Route: 065

REACTIONS (13)
  - Haematocrit decreased [Not Recovered/Not Resolved]
  - Palpitations [Unknown]
  - Haemoglobin decreased [Not Recovered/Not Resolved]
  - Hypersomnia [Not Recovered/Not Resolved]
  - Fatigue [Not Recovered/Not Resolved]
  - Epistaxis [Not Recovered/Not Resolved]
  - Injection site irritation [Unknown]
  - Decreased appetite [Recovering/Resolving]
  - Headache [Unknown]
  - White blood cell count decreased [Not Recovered/Not Resolved]
  - Red blood cell count decreased [Not Recovered/Not Resolved]
  - Platelet count decreased [Not Recovered/Not Resolved]
  - Impaired healing [Recovering/Resolving]

NARRATIVE: CASE EVENT DATE: 20091130
